FAERS Safety Report 15084013 (Version 1)
Quarter: 2018Q2

REPORT INFORMATION
  Report Type: Spontaneous
  Country: BR (occurrence: BR)
  Receive Date: 20180628
  Receipt Date: 20180628
  Transmission Date: 20180711
  Serious: Yes (Death)
  Sender: FDA-Public Use
  Company Number: BR-PURDUE-GBR-2018-0056981

PATIENT
  Age: 63 Year
  Sex: Male

DRUGS (1)
  1. OXYCONTIN [Suspect]
     Active Substance: OXYCODONE HYDROCHLORIDE
     Indication: PAIN
     Dosage: 3 TABLET, Q8H (STRENGHT 10MG)
     Route: 048
     Dates: start: 20180320, end: 20180526

REACTIONS (1)
  - Bladder neoplasm [Fatal]
